FAERS Safety Report 6431586 (Version 2)
Quarter: 2020Q3

REPORT INFORMATION
  Report Type: Spontaneous
  Country: GB (occurrence: GB)
  Receive Date: 20070919
  Receipt Date: 20071106
  Transmission Date: 20201105
  Serious: Yes (Hospitalization)
  Sender: FDA-Public Use
  Company Number: B0486949A

PATIENT
  Age: 7 Month
  Sex: Female

DRUGS (4)
  1. FERROUS SULFATE. [Suspect]
     Active Substance: FERROUS SULFATE
  2. COMBIVIR [Suspect]
     Active Substance: LAMIVUDINE\ZIDOVUDINE
     Indication: HIV INFECTION
  3. NEVIRAPINE. [Suspect]
     Active Substance: NEVIRAPINE
     Indication: HIV INFECTION
  4. ZIDOVUDINE. [Suspect]
     Active Substance: ZIDOVUDINE
     Indication: ANTIVIRAL PROPHYLAXIS
     Dosage: 4MGK TWICE PER DAY
     Route: 048

REACTIONS (11)
  - Ammonia increased [Unknown]
  - Eating disorder [Unknown]
  - Depressed level of consciousness [Unknown]
  - Amino acid level increased [Unknown]
  - Grunting [Unknown]
  - Rhinitis [Unknown]
  - Lethargy [Unknown]
  - Foetal growth restriction [Unknown]
  - Pallor [Unknown]
  - Acidosis [Unknown]
  - Methylmalonic aciduria [Unknown]
